FAERS Safety Report 16817328 (Version 2)
Quarter: 2019Q4

REPORT INFORMATION
  Report Type: Spontaneous
  Country: US (occurrence: US)
  Receive Date: 20190917
  Receipt Date: 20191211
  Transmission Date: 20200122
  Serious: No
  Sender: FDA-Public Use
  Company Number: US-PFIZER INC-2019394776

PATIENT
  Age: 66 Year
  Sex: Female
  Weight: 48.73 kg

DRUGS (3)
  1. CHANTIX [Suspect]
     Active Substance: VARENICLINE TARTRATE
     Dosage: 1 MG, 2X/DAY (QUANTITY FOR 90 DAYS: 180)
     Route: 048
  2. CHANTIX [Suspect]
     Active Substance: VARENICLINE TARTRATE
     Indication: NICOTINE DEPENDENCE
     Dosage: 0.5 MG, UNK (QUANTITY FOR 90 DAYS: 53)
     Route: 048
  3. CHANTIX [Suspect]
     Active Substance: VARENICLINE TARTRATE
     Dosage: 1 MG, UNK (QUANTITY FOR 90 DAYS: 53)
     Route: 048

REACTIONS (1)
  - Depression [Unknown]
